FAERS Safety Report 11493116 (Version 3)
Quarter: 2015Q4

REPORT INFORMATION
  Report Type: Spontaneous
  Country: DE (occurrence: DE)
  Receive Date: 20150911
  Receipt Date: 20151124
  Transmission Date: 20160304
  Serious: Yes (Other)
  Sender: FDA-Public Use
  Company Number: DE-SUN PHARMACEUTICAL INDUSTRIES LTD-2015RR-102683

PATIENT

DRUGS (2)
  1. ASPIRIN. [Concomitant]
     Active Substance: ASPIRIN
     Indication: PRODUCT USED FOR UNKNOWN INDICATION
     Dosage: UNK
     Route: 065
  2. TAMSULOSIN BASICS 0,4 MG HARTKAPSEL, RETARDIERT [Suspect]
     Active Substance: TAMSULOSIN
     Indication: BENIGN PROSTATIC HYPERPLASIA
     Dosage: 1 DF, DAILY
     Route: 065
     Dates: start: 20150824, end: 20150826

REACTIONS (5)
  - Epistaxis [Recovered/Resolved]
  - Pruritus [Recovering/Resolving]
  - Urethral haemorrhage [Recovered/Resolved]
  - Illusion [Recovering/Resolving]
  - Erection increased [Recovering/Resolving]

NARRATIVE: CASE EVENT DATE: 20150826
